FAERS Safety Report 18880884 (Version 2)
Quarter: 2021Q1

REPORT INFORMATION
  Report Type: Report from Study
  Country: None (occurrence: CA)
  Receive Date: 20210212
  Receipt Date: 20210310
  Transmission Date: 20210420
  Serious: Yes (Hospitalization)
  Sender: FDA-Public Use
  Company Number: CA-ABBVIE-21K-028-3762986-00

PATIENT
  Sex: Female

DRUGS (1)
  1. RINVOQ [Suspect]
     Active Substance: UPADACITINIB
     Indication: RHEUMATOID ARTHRITIS
     Route: 048
     Dates: start: 20200803

REACTIONS (6)
  - Vasospasm [Unknown]
  - Multiple sclerosis [Recovering/Resolving]
  - Vasculitis [Recovering/Resolving]
  - Peripheral arterial occlusive disease [Unknown]
  - Pain in extremity [Unknown]
  - Paraesthesia [Recovering/Resolving]
